FAERS Safety Report 19709476 (Version 1)
Quarter: 2021Q3

REPORT INFORMATION
  Report Type: Spontaneous
  Country: JP (occurrence: JP)
  Receive Date: 20210816
  Receipt Date: 20210816
  Transmission Date: 20211014
  Serious: Yes (Hospitalization, Other)
  Sender: FDA-Public Use
  Company Number: JP-PFIZER INC-202100987215

PATIENT
  Age: 52 Year
  Sex: Female

DRUGS (5)
  1. OLAPARIB. [Suspect]
     Active Substance: OLAPARIB
     Dosage: 3 CYCLES
  2. EPIRUBICIN HCL [Suspect]
     Active Substance: EPIRUBICIN HYDROCHLORIDE
     Dosage: 5 CYCLES
  3. CYCLOPHOSPHAMIDE. [Suspect]
     Active Substance: CYCLOPHOSPHAMIDE
     Dosage: 5 CYCLES
  4. TRASTUZUMAB. [Suspect]
     Active Substance: TRASTUZUMAB
     Dosage: 3 CYCLES
  5. PACLITAXEL. [Suspect]
     Active Substance: PACLITAXEL
     Dosage: 3 CYCLES

REACTIONS (2)
  - Cardiomyopathy [Recovered/Resolved]
  - Cardiac failure chronic [Recovered/Resolved]
